FAERS Safety Report 7977331-1 (Version None)
Quarter: 2011Q4

REPORT INFORMATION
  Report Type: 
  Country: None (occurrence: None)
  Receive Date: 20111213
  Receipt Date: 20060515
  Transmission Date: 20120403
  Serious: Yes (Other)
  Sender: FDA-Public Use
  Company Number: PHHY2006MX009306

PATIENT
  Age: 73 Year
  Sex: Female

DRUGS (6)
  1. LANOXIN [Concomitant]
  2. ADALAT [Concomitant]
  3. PANTOPRAZOLE SODIUM [Concomitant]
  4. DIOVAN HCT [Suspect]
     Indication: HYPERTENSION
     Dosage: 1 DF, UNK
     Route: 048
  5. PLASIL ENZIMATICO [Concomitant]
  6. LASIX [Concomitant]

REACTIONS (1)
  - EMBOLISM [None]
